FAERS Safety Report 13323236 (Version 1)
Quarter: 2017Q1

REPORT INFORMATION
  Report Type: Spontaneous
  Country: US (occurrence: US)
  Receive Date: 20170310
  Receipt Date: 20170310
  Transmission Date: 20170428
  Serious: Yes (Other)
  Sender: FDA-Public Use
  Company Number: US-ELI_LILLY_AND_COMPANY-US201607009101

PATIENT
  Sex: Female

DRUGS (3)
  1. CYMBALTA [Suspect]
     Active Substance: DULOXETINE HYDROCHLORIDE
     Dosage: 60 MG, QD
     Route: 048
     Dates: start: 20140430
  2. CYMBALTA [Suspect]
     Active Substance: DULOXETINE HYDROCHLORIDE
     Indication: DEPRESSION
     Dosage: UNK, UNKNOWN
     Route: 065
  3. CYMBALTA [Suspect]
     Active Substance: DULOXETINE HYDROCHLORIDE
     Dosage: 30 MG, QD
     Route: 048
     Dates: start: 20140416, end: 20140429

REACTIONS (11)
  - Vertigo [Recovering/Resolving]
  - Nausea [Not Recovered/Not Resolved]
  - Drug withdrawal syndrome [Unknown]
  - Suicidal ideation [Unknown]
  - Fatigue [Unknown]
  - Tinnitus [Unknown]
  - Dizziness [Recovering/Resolving]
  - Sensory disturbance [Unknown]
  - Agitation [Unknown]
  - Confusional state [Unknown]
  - Headache [Unknown]
